FAERS Safety Report 6179597-X (Version None)
Quarter: 2009Q2

REPORT INFORMATION
  Report Type: 
  Country: None (occurrence: None)
  Receive Date: 20090501
  Receipt Date: 20090501
  Transmission Date: 20091009
  Serious: Yes (Other)
  Sender: FDA-Public Use
  Company Number: None

PATIENT
  Age: 27 Year
  Sex: Female
  Weight: 71.6683 kg

DRUGS (1)
  1. MIRENA [Suspect]
     Indication: CONTRACEPTION
     Dosage: LEVONORGESTREL-RELEASING INTRA-UTERI
     Route: 015
     Dates: start: 20071020, end: 20090505

REACTIONS (4)
  - ALOPECIA [None]
  - DEPRESSION [None]
  - DERMATITIS [None]
  - TRICHORRHEXIS [None]
